FAERS Safety Report 9701468 (Version 1)
Quarter: 2013Q4

REPORT INFORMATION
  Report Type: Spontaneous
  Country: US (occurrence: US)
  Receive Date: 20131121
  Receipt Date: 20131121
  Transmission Date: 20140711
  Serious: No
  Sender: FDA-Public Use
  Company Number: US-MYLANLABS-2012S1023939

PATIENT
  Sex: Female

DRUGS (1)
  1. FUROSEMIDE TABLETS, USP [Suspect]
     Indication: CARDIAC FAILURE CONGESTIVE
     Route: 048

REACTIONS (3)
  - Drug effect delayed [Not Recovered/Not Resolved]
  - Micturition disorder [Not Recovered/Not Resolved]
  - Vision blurred [Not Recovered/Not Resolved]
